FAERS Safety Report 15745664 (Version 5)
Quarter: 2020Q1

REPORT INFORMATION
  Report Type: Report from Study
  Country: None (occurrence: BE)
  Receive Date: 20181220
  Receipt Date: 20200207
  Transmission Date: 20200409
  Serious: Yes (Other)
  Sender: FDA-Public Use
  Company Number: BE-ABBVIE-17K-013-2178967-00

PATIENT
  Sex: Male

DRUGS (22)
  1. DUODOPA [Suspect]
     Active Substance: CARBIDOPA\LEVODOPA
     Dosage: MD=5.5ML;??CD=3.7ML/HR (UNTIL 1PM)// 4.6 ML/HR (FROM 1 PM)  DURING 16H ; ??ED=2ML
     Route: 050
     Dates: start: 20170403, end: 2017
  2. DUODOPA [Suspect]
     Active Substance: CARBIDOPA\LEVODOPA
     Dosage: MD=5.5ML?CD=3.6 (AM)- 4.2 (PM) ML/HR DURING 16HRS ?ED=2ML
     Route: 050
     Dates: start: 20180313, end: 20180614
  3. TAMSULOSINE [Concomitant]
     Active Substance: TAMSULOSIN HYDROCHLORIDE
     Indication: PRODUCT USED FOR UNKNOWN INDICATION
  4. GLUCOPHAGE [Concomitant]
     Active Substance: METFORMIN HYDROCHLORIDE
     Indication: PRODUCT USED FOR UNKNOWN INDICATION
  5. MIRAPEXIN [Concomitant]
     Active Substance: PRAMIPEXOLE
     Indication: PARKINSON^S DISEASE
     Route: 048
  6. PROLOPA HBS [Concomitant]
     Active Substance: BENSERAZIDE\LEVODOPA
     Indication: PRODUCT USED FOR UNKNOWN INDICATION
  7. DUODOPA [Suspect]
     Active Substance: CARBIDOPA\LEVODOPA
     Indication: PARKINSON^S DISEASE
     Dosage: MD=9ML CD=4.3ML/HR DURING 16HRS  ED=1.5ML
     Route: 050
     Dates: start: 20160105, end: 20160108
  8. DUODOPA [Suspect]
     Active Substance: CARBIDOPA\LEVODOPA
     Dosage: MD=5.5ML CD=3.6 (AM) - 4.2 (PMM)ML/HR DURING 16HRS ED=1.5ML
     Route: 050
     Dates: start: 20180614, end: 20181212
  9. ALDACTAZINE [Concomitant]
     Active Substance: ALTHIAZIDE\SPIRONOLACTONE
     Indication: PRODUCT USED FOR UNKNOWN INDICATION
     Dosage: FORM STRENGTH: 25MG/15MG
  10. CORUNO [Concomitant]
     Active Substance: MOLSIDOMINE
     Indication: PRODUCT USED FOR UNKNOWN INDICATION
  11. SIMVASTATINE [Concomitant]
     Active Substance: SIMVASTATIN
     Indication: PRODUCT USED FOR UNKNOWN INDICATION
  12. MIRAPEXIN [Concomitant]
     Active Substance: PRAMIPEXOLE
     Dosage: DOSAGE HAS BEEN CHANGED
  13. DUODOPA [Suspect]
     Active Substance: CARBIDOPA\LEVODOPA
     Dosage: DOSE CONTINUOUSLY MONITORED AND ADAPTED
     Route: 050
     Dates: start: 20160108, end: 20170403
  14. DUODOPA [Suspect]
     Active Substance: CARBIDOPA\LEVODOPA
     Route: 050
     Dates: start: 2017, end: 20171122
  15. DUODOPA [Suspect]
     Active Substance: CARBIDOPA\LEVODOPA
     Dosage: MD=5.5ML??CD=3.6ML/HR DURING 16HRS ??ED=2ML
     Route: 050
     Dates: start: 20171122, end: 20180313
  16. RIVOTRIL [Concomitant]
     Active Substance: CLONAZEPAM
     Indication: PRODUCT USED FOR UNKNOWN INDICATION
  17. CARDIOASPIRIN [Concomitant]
     Active Substance: ASPIRIN
     Indication: PRODUCT USED FOR UNKNOWN INDICATION
  18. DUODOPA [Suspect]
     Active Substance: CARBIDOPA\LEVODOPA
     Dosage: MD= 5.5ML CD= 3.7 (AM) AND 4.2 (PM) ML/HR DURING 16HRS ED= 1.5ML
     Route: 050
     Dates: start: 20181212, end: 20190619
  19. DUODOPA [Suspect]
     Active Substance: CARBIDOPA\LEVODOPA
     Dosage: MD=5.5ML, CD=4ML/HR DURING 16HRS, ED=1.5ML
     Route: 050
     Dates: start: 20190619
  20. SOTALOL 80 [Concomitant]
     Indication: PRODUCT USED FOR UNKNOWN INDICATION
  21. METARELAX [Concomitant]
     Indication: PRODUCT USED FOR UNKNOWN INDICATION
  22. PROLOPA [Concomitant]
     Active Substance: BENSERAZIDE\LEVODOPA
     Indication: PRODUCT USED FOR UNKNOWN INDICATION
     Dosage: UNIT DOSE/FREQUENCY: 1 TO 2 TABLETS AT NIGHT

REACTIONS (10)
  - Gait disturbance [Unknown]
  - Freezing phenomenon [Not Recovered/Not Resolved]
  - Dyskinesia [Not Recovered/Not Resolved]
  - Muscle rigidity [Unknown]
  - Sleep disorder [Unknown]
  - Dystonia [Not Recovered/Not Resolved]
  - Weight decreased [Unknown]
  - On and off phenomenon [Not Recovered/Not Resolved]
  - Fibrous histiocytoma [Recovering/Resolving]
  - Mobility decreased [Unknown]
